FAERS Safety Report 15413009 (Version 1)
Quarter: 2018Q3

REPORT INFORMATION
  Report Type: Report from Study
  Country: None (occurrence: US)
  Receive Date: 20180921
  Receipt Date: 20180921
  Transmission Date: 20181010
  Serious: Yes (Other)
  Sender: FDA-Public Use
  Company Number: US-ABBVIE-18K-163-2489978-00

PATIENT
  Sex: Male

DRUGS (1)
  1. HUMIRA [Suspect]
     Active Substance: ADALIMUMAB
     Indication: CROHN^S DISEASE
     Route: 058

REACTIONS (8)
  - Injection site pain [Unknown]
  - Anal fissure [Recovered/Resolved]
  - Diarrhoea haemorrhagic [Unknown]
  - Injection site papule [Unknown]
  - Injection site rash [Unknown]
  - Injection site haemorrhage [Unknown]
  - Injection site pruritus [Unknown]
  - Injection site swelling [Unknown]
